FAERS Safety Report 20899672 (Version 2)
Quarter: 2022Q2

REPORT INFORMATION
  Report Type: Spontaneous
  Country: GB (occurrence: GB)
  Receive Date: 20220601
  Receipt Date: 20220630
  Transmission Date: 20220721
  Serious: Yes (Hospitalization)
  Sender: FDA-Public Use
  Company Number: GB-009507513-2205GBR008022

PATIENT
  Age: 72 Year
  Sex: Male
  Weight: 79 kg

DRUGS (5)
  1. PEMBROLIZUMAB [Suspect]
     Active Substance: PEMBROLIZUMAB
     Indication: Malignant melanoma stage III
     Dosage: 400 MILLIGRAM, EVERY 6 WEEKS
     Route: 042
     Dates: start: 20210319, end: 20220217
  2. ATORVASTATIN [Concomitant]
     Active Substance: ATORVASTATIN
     Dosage: 20 MILLIGRAM
  3. LATANOPROST [Concomitant]
     Active Substance: LATANOPROST
  4. LISINOPRIL [Concomitant]
     Active Substance: LISINOPRIL
     Dosage: 10 MILLIGRAM
  5. RIVAROXABAN [Concomitant]
     Active Substance: RIVAROXABAN
     Indication: Atrial fibrillation
     Dosage: 20 MILLIGRAM

REACTIONS (1)
  - Asthma [Recovered/Resolved]

NARRATIVE: CASE EVENT DATE: 20210506
